FAERS Safety Report 16542594 (Version 2)
Quarter: 2019Q3

REPORT INFORMATION
  Report Type: Spontaneous
  Country: GB (occurrence: GB)
  Receive Date: 20190709
  Receipt Date: 20190724
  Transmission Date: 20191004
  Serious: Yes (Other)
  Sender: FDA-Public Use
  Company Number: GB-CONCORDIA PHARMACEUTICALS INC.-E2B_00020180

PATIENT
  Age: 38 Year
  Sex: Male

DRUGS (9)
  1. PREDNISOLONE. [Suspect]
     Active Substance: PREDNISOLONE
     Dosage: THE STEROIDS WERE WEANED BY 5 MG WEEKLY UNTIL CESSATION
     Route: 048
  2. PREDNISOLONE. [Suspect]
     Active Substance: PREDNISOLONE
     Dosage: THE STEROIDS WERE WEANED BY 5 MG WEEKLY UNTIL CESSATION
     Route: 048
  3. PREDNISOLONE. [Suspect]
     Active Substance: PREDNISOLONE
     Dosage: THE STEROIDS WERE WEANED BY 5 MG WEEKLY UNTIL CESSATION
     Route: 048
  4. PREDNISOLONE. [Suspect]
     Active Substance: PREDNISOLONE
     Dosage: THE STEROIDS WERE WEANED BY 5 MG WEEKLY UNTIL CESSATION
     Route: 048
  5. PREDNISOLONE. [Suspect]
     Active Substance: PREDNISOLONE
     Dosage: THE STEROIDS WERE WEANED BY 5 MG WEEKLY UNTIL CESSATION
     Route: 048
  6. PREDNISOLONE. [Suspect]
     Active Substance: PREDNISOLONE
     Indication: AUTOIMMUNE HEPATITIS
     Dosage: THE STEROIDS WERE WEANED BY 5 MG WEEKLY UNTIL CESSATION
     Route: 048
  7. AZATHIOPRINE. [Concomitant]
     Active Substance: AZATHIOPRINE
     Indication: AUTOIMMUNE HEPATITIS
  8. PREDNISOLONE. [Suspect]
     Active Substance: PREDNISOLONE
     Dosage: THE STEROIDS WERE WEANED BY 5 MG WEEKLY UNTIL CESSATION
     Route: 048
  9. PREDNISOLONE. [Suspect]
     Active Substance: PREDNISOLONE
     Dosage: THE STEROIDS WERE WEANED BY 5 MG WEEKLY UNTIL CESSATION
     Route: 048

REACTIONS (1)
  - Gastritis [Unknown]
